FAERS Safety Report 17211622 (Version 1)
Quarter: 2019Q4

REPORT INFORMATION
  Report Type: Report from Study
  Country: None (occurrence: NL)
  Receive Date: 20191229
  Receipt Date: 20191229
  Transmission Date: 20200122
  Serious: Yes (Hospitalization)
  Sender: FDA-Public Use
  Company Number: NL-ABBVIE-16P-114-1814211-00

PATIENT
  Age: 63 Year
  Sex: Male
  Weight: 83.3 kg

DRUGS (9)
  1. LEVODOPA [Suspect]
     Active Substance: LEVODOPA
     Indication: PRODUCT USED FOR UNKNOWN INDICATION
     Dosage: FOR THE NIGHT
     Route: 048
  2. MADOPAR [Suspect]
     Active Substance: BENSERAZIDE HYDROCHLORIDE\LEVODOPA
     Indication: PARKINSON^S DISEASE
     Dosage: FOR THE NIGHT
     Route: 048
  3. DUODOPA [Suspect]
     Active Substance: CARBIDOPA\LEVODOPA
     Dosage: MD: 9.0, CD: 4.2  ED: 2.2
     Route: 050
  4. DUODOPA [Suspect]
     Active Substance: CARBIDOPA\LEVODOPA
     Route: 050
  5. MOVICOLON [Concomitant]
     Active Substance: POLYETHYLENE GLYCOL 3350\POTASSIUM CHLORIDE\SODIUM BICARBONATE\SODIUM CHLORIDE
     Indication: ABNORMAL FAECES
     Dosage: IF NECESSARY
  6. DUODOPA [Suspect]
     Active Substance: CARBIDOPA\LEVODOPA
     Indication: PARKINSON^S DISEASE
     Dosage: MD: 9.0, CD: 4.1  ED: 2.2
     Route: 050
     Dates: start: 20151130
  7. DUODOPA [Suspect]
     Active Substance: CARBIDOPA\LEVODOPA
     Dosage: MORNING DOSE: 9 CONTINUOUS DOSE: 4.4 EXTRA DOSE 2.2
     Route: 050
  8. MACROGOL [Concomitant]
     Active Substance: POLYETHYLENE GLYCOLS
     Indication: ABNORMAL FAECES
  9. MADOPAR HBS [Concomitant]
     Active Substance: BENSERAZIDE HYDROCHLORIDE\LEVODOPA
     Indication: PRODUCT USED FOR UNKNOWN INDICATION
     Dosage: FOR THE NIGHT

REACTIONS (30)
  - Fibroma [Recovered/Resolved]
  - Stoma site discharge [Not Recovered/Not Resolved]
  - Stoma site haemorrhage [Not Recovered/Not Resolved]
  - Pneumonia aspiration [Unknown]
  - Restlessness [Recovered/Resolved]
  - Fibroma [Not Recovered/Not Resolved]
  - Salivary hypersecretion [Recovered/Resolved]
  - On and off phenomenon [Not Recovered/Not Resolved]
  - Stoma site reaction [Not Recovered/Not Resolved]
  - Defaecation urgency [Recovered/Resolved]
  - Abnormal faeces [Unknown]
  - Gastrointestinal motility disorder [Recovered/Resolved]
  - Stoma site erythema [Recovered/Resolved]
  - Stoma site discharge [Unknown]
  - Fall [Not Recovered/Not Resolved]
  - Bacterial infection [Recovered/Resolved]
  - Embedded device [Recovered/Resolved]
  - Hypersexuality [Not Recovered/Not Resolved]
  - Device difficult to use [Recovered/Resolved]
  - Somnolence [Recovering/Resolving]
  - Stoma site irritation [Not Recovered/Not Resolved]
  - Infrequent bowel movements [Recovered/Resolved]
  - Abnormal dreams [Recovering/Resolving]
  - Stoma site discharge [Recovered/Resolved]
  - Loss of personal independence in daily activities [Recovered/Resolved]
  - Therapy change [Not Recovered/Not Resolved]
  - Decreased appetite [Unknown]
  - Depressed mood [Recovered/Resolved]
  - Parkinson^s disease [Not Recovered/Not Resolved]
  - Stoma site discomfort [Not Recovered/Not Resolved]

NARRATIVE: CASE EVENT DATE: 201809
